FAERS Safety Report 25111324 (Version 1)
Quarter: 2025Q1

REPORT INFORMATION
  Report Type: Report from Study
  Country: CA (occurrence: CA)
  Receive Date: 20250324
  Receipt Date: 20250324
  Transmission Date: 20250408
  Serious: Yes (Other)
  Sender: CSL BEHRING
  Company Number: CA-BEH-2025199181

PATIENT
  Age: 59 Year
  Sex: Female
  Weight: 80 kg

DRUGS (11)
  1. HIZENTRA [Suspect]
     Active Substance: HUMAN IMMUNOGLOBULIN G
     Indication: Secondary immunodeficiency
     Dosage: STRENGTH: 8 G, QW
     Route: 065
     Dates: start: 20230717
  2. CEPHALEXIN [Concomitant]
     Active Substance: CEPHALEXIN
  3. ZOLPIDEM [Concomitant]
     Active Substance: ZOLPIDEM TARTRATE
  4. IRBESARTAN [Concomitant]
     Active Substance: IRBESARTAN
  5. SYSTANE (HYPROMELLOSE 2910 (4000 MPA.S)) [Concomitant]
     Active Substance: HYPROMELLOSE 2910 (4000 MPA.S)
  6. FUSIDIC ACID [Concomitant]
     Active Substance: FUSIDIC ACID
  7. LIDOCAINE [Concomitant]
     Active Substance: LIDOCAINE
  8. CLOTRIMAZOLE [Concomitant]
     Active Substance: CLOTRIMAZOLE
  9. CLOTRIMAZOLE [Concomitant]
     Active Substance: CLOTRIMAZOLE
  10. HYDROCORTISONE [Concomitant]
     Active Substance: HYDROCORTISONE
  11. BETADERM [Concomitant]
     Active Substance: BETAMETHASONE VALERATE

REACTIONS (7)
  - Infusion site infection [Unknown]
  - Nausea [Unknown]
  - Vomiting [Unknown]
  - Infusion site mass [Unknown]
  - Pyrexia [Unknown]
  - Infusion site erythema [Unknown]
  - Infusion site warmth [Unknown]

NARRATIVE: CASE EVENT DATE: 20250301
